FAERS Safety Report 19913288 (Version 3)
Quarter: 2021Q4

REPORT INFORMATION
  Report Type: Spontaneous
  Country: US (occurrence: US)
  Receive Date: 20211004
  Receipt Date: 20211119
  Transmission Date: 20220303
  Serious: Yes (Hospitalization)
  Sender: FDA-Public Use
  Company Number: US-009507513-2109USA006796

PATIENT
  Sex: Female
  Weight: 129.25 kg

DRUGS (17)
  1. KEYTRUDA [Suspect]
     Active Substance: PEMBROLIZUMAB
  2. LENVIMA [Concomitant]
     Active Substance: LENVATINIB
     Dosage: 12 MILLIGRAM, QD; LENVIMA 12MG (3 X 4MG) 5 DAY PK - COMM
     Route: 048
  3. ATENOLOL [Concomitant]
     Active Substance: ATENOLOL
  4. TYLENOL [Concomitant]
     Active Substance: ACETAMINOPHEN
  5. BUPROPION HYDROCHLORIDE [Concomitant]
     Active Substance: BUPROPION HYDROCHLORIDE
     Dosage: BUPROPION HCL SR 200 MG TAB SR 12H
  6. ELIQUIS [Concomitant]
     Active Substance: APIXABAN
  7. TIZANIDINE HYDROCHLORIDE [Concomitant]
     Active Substance: TIZANIDINE HYDROCHLORIDE
  8. GLUCOSAMINE, CHONDROITIN + MSM [Concomitant]
  9. IMODIUM [Concomitant]
     Active Substance: LOPERAMIDE HYDROCHLORIDE
  10. DOCUSATE SODIUM [Concomitant]
     Active Substance: DOCUSATE SODIUM
  11. TRAMADOL HCL [Concomitant]
     Active Substance: TRAMADOL HYDROCHLORIDE
     Dosage: TRAMADOL HCL ER 100 MG TAB ER 24H
  12. VITAMIN D3 [Concomitant]
     Active Substance: CHOLECALCIFEROL
  13. HYDROXYZINE HYDROCHLORIDE [Concomitant]
     Active Substance: HYDROXYZINE HYDROCHLORIDE
  14. LIDO PRILO CAINE PACK [Concomitant]
  15. MELATONIN [Concomitant]
     Active Substance: MELATONIN
  16. PROCHLORPERAZINE MALEATE [Concomitant]
     Active Substance: PROCHLORPERAZINE MALEATE
  17. ONDANSETRON HCL [Concomitant]
     Active Substance: ONDANSETRON HYDROCHLORIDE

REACTIONS (1)
  - Ill-defined disorder [Unknown]
